FAERS Safety Report 5512396-8 (Version None)
Quarter: 2007Q4

REPORT INFORMATION
  Report Type: 
  Country: None (occurrence: None)
  Receive Date: 20071112
  Receipt Date: 20071101
  Transmission Date: 20080405
  Serious: Yes (Hospitalization, Other)
  Sender: FDA-Public Use
  Company Number: BR-TYCO HEALTHCARE/MALLINCKRODT-T200701381

PATIENT

DRUGS (2)
  1. OPTIMARK [Suspect]
     Indication: NUCLEAR MAGNETIC RESONANCE IMAGING
     Route: 042
     Dates: start: 20061218, end: 20061218
  2. OPTIMARK [Suspect]
     Route: 042
     Dates: start: 20061222, end: 20061222

REACTIONS (2)
  - NEPHROGENIC SYSTEMIC FIBROSIS [None]
  - SKIN LESION [None]
